FAERS Safety Report 20874218 (Version 1)
Quarter: 2022Q2

REPORT INFORMATION
  Report Type: Spontaneous
  Country: ES (occurrence: ES)
  Receive Date: 20220525
  Receipt Date: 20220525
  Transmission Date: 20220721
  Serious: Yes (Other)
  Sender: FDA-Public Use
  Company Number: None

PATIENT
  Age: 59 Year
  Sex: Male

DRUGS (4)
  1. VORICONAZOLE [Suspect]
     Active Substance: VORICONAZOLE
     Indication: Pneumonia
     Dosage: 500 MG, 2X/DAY (EACH 12H)
     Route: 042
     Dates: start: 20220207, end: 20220223
  2. ERYTHROMYCIN LACTOBIONATE [Suspect]
     Active Substance: ERYTHROMYCIN LACTOBIONATE
     Indication: Pneumonia
     Dosage: 250 MG, 3X/DAY (EACH 8H)
     Route: 042
     Dates: start: 20220208, end: 20220213
  3. CLOXACILLIN [Suspect]
     Active Substance: CLOXACILLIN
     Indication: Pneumonia
     Dosage: 2 G, 1X/DAY
     Route: 042
     Dates: start: 20220208, end: 20220222
  4. METHYLPREDNISOLONE ACETATE [Concomitant]
     Active Substance: METHYLPREDNISOLONE ACETATE
     Dosage: 90MG,FREQ:12 H;
     Route: 042
     Dates: start: 20220220, end: 20220221

REACTIONS (2)
  - Mixed liver injury [Recovered/Resolved]
  - Off label use [Unknown]

NARRATIVE: CASE EVENT DATE: 20220207
